FAERS Safety Report 5113310-X (Version None)
Quarter: 2006Q3

REPORT INFORMATION
  Report Type: 
  Country: None (occurrence: None)
  Receive Date: 20060920
  Receipt Date: 20060912
  Transmission Date: 20061208
  Serious: Yes (Other)
  Sender: FDA-Public Use
  Company Number: HQWYE195116JUL04

PATIENT
  Age: 76 Year
  Sex: Female
  Weight: 44.49 kg

DRUGS (5)
  1. PREMPRO [Suspect]
     Indication: HORMONE REPLACEMENT THERAPY
     Dates: start: 19980101, end: 19980101
  2. PREMARIN [Suspect]
     Indication: HORMONE REPLACEMENT THERAPY
     Dates: start: 19970101, end: 19970101
  3. ATENOLOL [Concomitant]
  4. OSCAL (CALCIUM CARBONATE) [Concomitant]
  5. ACTONEL [Concomitant]

REACTIONS (2)
  - BREAST CANCER FEMALE [None]
  - BREAST CANCER METASTATIC [None]
